FAERS Safety Report 9991932 (Version 1)
Quarter: 2014Q1

REPORT INFORMATION
  Report Type: Spontaneous
  Country: US (occurrence: US)
  Receive Date: 20140310
  Receipt Date: 20140310
  Transmission Date: 20141002
  Serious: No
  Sender: FDA-Public Use
  Company Number: US-VIIV HEALTHCARE LIMITED-A1059278A

PATIENT
  Age: 62 Year
  Sex: Male

DRUGS (4)
  1. TIVICAY [Suspect]
     Indication: HIV INFECTION
     Dosage: 50MG PER DAY
     Route: 048
     Dates: start: 201310
  2. SELZENTRY [Concomitant]
  3. DIOVAN [Concomitant]
  4. HCTZ [Concomitant]

REACTIONS (2)
  - Amylase increased [Not Recovered/Not Resolved]
  - Blood creatine phosphokinase increased [Not Recovered/Not Resolved]
